FAERS Safety Report 7213211-7 (Version None)
Quarter: 2011Q1

REPORT INFORMATION
  Report Type: 
  Country: None (occurrence: None)
  Receive Date: 20110106
  Receipt Date: 20110104
  Transmission Date: 20110831
  Serious: Yes (Other)
  Sender: FDA-Public Use
  Company Number: US-AMGEN-USASP2010008373

PATIENT

DRUGS (2)
  1. ENBREL [Suspect]
     Dates: start: 20100710, end: 20101209
  2. ENBREL [Suspect]
     Indication: RHEUMATOID ARTHRITIS
     Dosage: 50 MG, QWK
     Dates: start: 20100601, end: 20101119

REACTIONS (2)
  - DRUG HYPERSENSITIVITY [None]
  - RASH GENERALISED [None]
